FAERS Safety Report 12109558 (Version 1)
Quarter: 2016Q1

REPORT INFORMATION
  Report Type: Report from Study
  Country: CA (occurrence: CA)
  Receive Date: 20160224
  Receipt Date: 20160224
  Transmission Date: 20160526
  Serious: Yes (Other)
  Sender: FDA-Public Use
  Company Number: CA-ROCHE-1136352

PATIENT
  Age: 41 Year
  Sex: Female
  Weight: 83 kg

DRUGS (15)
  1. ACTEMRA [Suspect]
     Active Substance: TOCILIZUMAB
     Indication: RHEUMATOID ARTHRITIS
     Route: 042
     Dates: start: 20120117
  2. ACTEMRA [Suspect]
     Active Substance: TOCILIZUMAB
     Route: 042
     Dates: start: 20150122
  3. CRESTOR [Concomitant]
     Active Substance: ROSUVASTATIN CALCIUM
     Route: 065
  4. ELAVIL [Concomitant]
     Active Substance: AMITRIPTYLINE HYDROCHLORIDE
  5. ACTEMRA [Suspect]
     Active Substance: TOCILIZUMAB
     Route: 042
     Dates: start: 20150409
  6. ACTEMRA [Suspect]
     Active Substance: TOCILIZUMAB
     Route: 042
     Dates: end: 20160128
  7. CRESTOR [Concomitant]
     Active Substance: ROSUVASTATIN CALCIUM
     Route: 065
     Dates: start: 201204
  8. CRESTOR [Concomitant]
     Active Substance: ROSUVASTATIN CALCIUM
     Route: 065
     Dates: start: 201304
  9. ACTEMRA [Suspect]
     Active Substance: TOCILIZUMAB
     Route: 042
     Dates: start: 20121113
  10. ACTEMRA [Suspect]
     Active Substance: TOCILIZUMAB
     Route: 042
     Dates: start: 20150312
  11. GABAPENTIN. [Concomitant]
     Active Substance: GABAPENTIN
  12. METOPROLOL. [Concomitant]
     Active Substance: METOPROLOL
  13. PANTOLOC [Concomitant]
     Active Substance: PANTOPRAZOLE SODIUM
  14. TRAMADOL HYDROCHLORIDE. [Concomitant]
     Active Substance: TRAMADOL HYDROCHLORIDE
  15. CYMBALTA [Concomitant]
     Active Substance: DULOXETINE HYDROCHLORIDE
     Dosage: QD
     Route: 065
     Dates: start: 20131009

REACTIONS (21)
  - Blood cholesterol increased [Not Recovered/Not Resolved]
  - Drug effect decreased [Unknown]
  - Insomnia [Not Recovered/Not Resolved]
  - Pain [Recovered/Resolved]
  - Cough [Unknown]
  - Nasopharyngitis [Not Recovered/Not Resolved]
  - Weight decreased [Unknown]
  - Skin exfoliation [Recovering/Resolving]
  - Fatigue [Not Recovered/Not Resolved]
  - Respiratory tract congestion [Recovered/Resolved]
  - Body temperature decreased [Unknown]
  - Urinary tract infection [Recovered/Resolved]
  - Fibromyalgia [Unknown]
  - Lower respiratory tract infection [Recovering/Resolving]
  - Infusion related reaction [Unknown]
  - Sinusitis [Recovered/Resolved]
  - Weight increased [Unknown]
  - Pyrexia [Recovered/Resolved]
  - Upper respiratory tract congestion [Recovered/Resolved]
  - Dysphonia [Recovered/Resolved]
  - Body temperature decreased [Unknown]

NARRATIVE: CASE EVENT DATE: 20120808
